FAERS Safety Report 5265279-5 (Version None)
Quarter: 2007Q1

REPORT INFORMATION
  Report Type: 
  Country: None (occurrence: None)
  Receive Date: 20061121
  Receipt Date: 20060816
  Transmission Date: 20070707
  Serious: No
  Sender: FDA-Public Use
  Company Number: TPA2005A01456

PATIENT
  Sex: 0

DRUGS (1)
  1. ROZEREM [Suspect]
     Dosage: PER ORAL
     Route: 048

REACTIONS (4)
  - AGITATION [None]
  - ANXIETY [None]
  - PARADOXICAL DRUG REACTION [None]
  - RESTLESSNESS [None]
